FAERS Safety Report 16776536 (Version 6)
Quarter: 2022Q1

REPORT INFORMATION
  Report Type: Other
  Country: CN (occurrence: CN)
  Receive Date: 20190905
  Receipt Date: 20220121
  Transmission Date: 20220423
  Serious: Yes (Hospitalization)
  Sender: FDA-Public Use
  Company Number: CN-002147023-PHHY2019CN197843

PATIENT
  Age: 68 Year
  Sex: Male
  Weight: 76 kg

DRUGS (17)
  1. RANIBIZUMAB [Suspect]
     Active Substance: RANIBIZUMAB
     Indication: Neovascular age-related macular degeneration
     Route: 031
     Dates: start: 20190520, end: 20190520
  2. RANIBIZUMAB [Suspect]
     Active Substance: RANIBIZUMAB
     Indication: Retinal vein occlusion
     Route: 031
     Dates: start: 20190820
  3. RANIBIZUMAB [Suspect]
     Active Substance: RANIBIZUMAB
     Indication: Diabetic retinal oedema
     Route: 031
  4. RANIBIZUMAB [Suspect]
     Active Substance: RANIBIZUMAB
     Indication: Macular oedema
  5. FELODIPINE [Concomitant]
     Active Substance: FELODIPINE
     Indication: Hypertension
     Dosage: UNK UNK, QD
     Route: 048
  6. DIOSMIN [Concomitant]
     Active Substance: DIOSMIN
     Indication: Neovascular age-related macular degeneration
     Dosage: UNK UNK, BID (12 DAYS)
     Route: 065
     Dates: start: 20190823
  7. DIOSMIN [Concomitant]
     Active Substance: DIOSMIN
     Dosage: UNK UNK, BID (12 DAYS)
     Route: 065
     Dates: start: 20190820
  8. DIOSMIN [Concomitant]
     Active Substance: DIOSMIN
     Dosage: 2 OT, UNK
     Route: 048
     Dates: start: 20190607
  9. DIOSMIN [Concomitant]
     Active Substance: DIOSMIN
     Dosage: 2 OT, UNK
     Route: 048
     Dates: start: 20190618, end: 20190903
  10. ESCULIN [Concomitant]
     Active Substance: ESCULIN
     Indication: Neovascular age-related macular degeneration
     Dosage: 0.004 OT
     Route: 031
     Dates: start: 20190520, end: 20190608
  11. ESCULIN [Concomitant]
     Active Substance: ESCULIN
     Dosage: 0.004 UNK
     Route: 031
     Dates: start: 20190605, end: 20190614
  12. ESCULIN [Concomitant]
     Active Substance: ESCULIN
     Dosage: 0.004 UNK
     Route: 031
     Dates: start: 20190930, end: 20191019
  13. HYALURONATE SODIUM [Concomitant]
     Active Substance: HYALURONATE SODIUM
     Indication: Neovascular age-related macular degeneration
     Dosage: 0.1 MG
     Route: 031
     Dates: start: 20200417
  14. AUGENTROPFEN [Concomitant]
     Indication: Neovascular age-related macular degeneration
     Dosage: 0.004 ML
     Route: 031
     Dates: start: 20190605, end: 20190614
  15. HYLO [Concomitant]
     Indication: Neovascular age-related macular degeneration
     Dosage: 0.1 ML
     Route: 031
     Dates: start: 20200417
  16. HYLO [Concomitant]
     Indication: Prophylaxis
  17. COMPOUND RUTIN TABLETS [Concomitant]
     Indication: Vitrectomy
     Route: 065
     Dates: start: 20190820, end: 20190821

REACTIONS (2)
  - Vitreous haemorrhage [Unknown]
  - Lung disorder [Unknown]

NARRATIVE: CASE EVENT DATE: 20190811
